FAERS Safety Report 7234997-1 (Version None)
Quarter: 2011Q1

REPORT INFORMATION
  Report Type: 
  Country: None (occurrence: None)
  Receive Date: 20110114
  Receipt Date: 20110114
  Transmission Date: 20110831
  Serious: Yes (Other)
  Sender: FDA-Public Use
  Company Number: None

PATIENT
  Age: 34 Year
  Sex: Female
  Weight: 84.369 kg

DRUGS (1)
  1. MIRENA [Suspect]
     Indication: THROMBOSIS

REACTIONS (1)
  - ALOPECIA [None]
